FAERS Safety Report 16957448 (Version 3)
Quarter: 2020Q1

REPORT INFORMATION
  Report Type: Report from Study
  Country: US (occurrence: US)
  Receive Date: 20191024
  Receipt Date: 20200127
  Transmission Date: 20200409
  Serious: Yes (Hospitalization, Other)
  Sender: FDA-Public Use
  Company Number: US-SA-2017SA177504

PATIENT
  Age: 70 Year
  Sex: Female
  Weight: 96.6 kg

DRUGS (38)
  1. SOLU-MEDROL [Concomitant]
     Active Substance: METHYLPREDNISOLONE SODIUM SUCCINATE
     Indication: PROPHYLAXIS
     Dosage: 1000 MG,UNK
     Route: 042
     Dates: start: 20170511, end: 20170517
  2. TOLTERODINE [Concomitant]
     Active Substance: TOLTERODINE
     Dosage: 2 UNK
     Route: 048
  3. HYDROCODONE/ACETAMINOPHEN [Concomitant]
     Active Substance: ACETAMINOPHEN\HYDROCODONE
     Dosage: 5MG-325MG
     Route: 048
  4. LABETALOL [Concomitant]
     Active Substance: LABETALOL\LABETALOL HYDROCHLORIDE
     Dosage: 20MG/4ML INJEC 10 MG 2ML IV PUSH
     Route: 042
  5. PANTOPRAZOLE [Concomitant]
     Active Substance: PANTOPRAZOLE
     Dosage: 40 MG, QD
     Route: 048
  6. ZANTAC [Concomitant]
     Active Substance: RANITIDINE HYDROCHLORIDE
     Indication: PROPHYLAXIS
     Dosage: 150 MG,UNK
     Route: 048
     Dates: start: 20170504
  7. TOLTERODINE [Concomitant]
     Active Substance: TOLTERODINE
     Indication: MULTIPLE SCLEROSIS
     Dosage: 4 MG,UNK
     Route: 048
     Dates: start: 2015
  8. BIOTIN [Concomitant]
     Active Substance: BIOTIN
     Indication: MULTIPLE SCLEROSIS
     Dosage: 5 MG,UNK
     Route: 048
     Dates: start: 2015
  9. METOPROLOL. [Concomitant]
     Active Substance: METOPROLOL
     Indication: HYPERTENSION
     Dosage: 25 MG,UNK
     Route: 048
     Dates: start: 2015
  10. TRAMADOL. [Concomitant]
     Active Substance: TRAMADOL
     Indication: FRACTURE TREATMENT
     Dosage: 50 MG,UNK
     Route: 048
     Dates: start: 2011
  11. MIRABEGRON [Concomitant]
     Active Substance: MIRABEGRON
     Dosage: 56 MG (EXTENDED RELEASE TABLET)
     Route: 048
  12. DOXYCYCLINE. [Concomitant]
     Active Substance: DOXYCYCLINE
     Dosage: 100 MG, BID
     Route: 048
  13. LUBIPROSTONE [Concomitant]
     Active Substance: LUBIPROSTONE
     Dosage: 24 UG, BID
     Route: 048
  14. MORPHINE [Concomitant]
     Active Substance: MORPHINE
     Dosage: 2 MG/ML, Q4H
     Route: 042
  15. ALEMTUZUMAB [Suspect]
     Active Substance: ALEMTUZUMAB
     Indication: RELAPSING MULTIPLE SCLEROSIS
     Dosage: QD
     Route: 041
     Dates: start: 20170511, end: 20170512
  16. CEFTRIAXONE. [Concomitant]
     Active Substance: CEFTRIAXONE
     Dosage: 1 G/10ML
     Route: 042
  17. ENOXAPARIN [Concomitant]
     Active Substance: ENOXAPARIN
     Dosage: 40 MG, UNK
     Route: 065
  18. TEMAZEPAM. [Concomitant]
     Active Substance: TEMAZEPAM
     Dosage: 15 MG, HS
     Route: 048
  19. BACLOFEN. [Concomitant]
     Active Substance: BACLOFEN
     Indication: MULTIPLE SCLEROSIS
     Dosage: 10 MG,UNK
     Route: 048
     Dates: start: 2015
  20. METHENAMINE HIPPURATE. [Concomitant]
     Active Substance: METHENAMINE HIPPURATE
     Dosage: 1 G, QD
     Route: 048
  21. POLYETHYLENE GLYCOL 3350. [Concomitant]
     Active Substance: POLYETHYLENE GLYCOL 3350
     Dosage: 17 G, QD
     Route: 048
  22. ZYRTEC [Concomitant]
     Active Substance: CETIRIZINE HYDROCHLORIDE
     Indication: PROPHYLAXIS
     Dosage: 10 MG,UNK
     Route: 048
     Dates: start: 20170504, end: 20170520
  23. TYLENOL [Concomitant]
     Active Substance: ACETAMINOPHEN
     Indication: PROPHYLAXIS
     Dosage: 1000 MG,UNK
     Route: 048
     Dates: start: 20170511, end: 20170517
  24. MIRABEGRON [Concomitant]
     Active Substance: MIRABEGRON
     Dosage: 50 MG, QD
     Route: 048
  25. ACETAMINOPHEN. [Concomitant]
     Active Substance: ACETAMINOPHEN
     Dosage: 323 MG, Q8H
     Route: 048
  26. ATORVASTATIN [Concomitant]
     Active Substance: ATORVASTATIN
     Dosage: 10 MG, HS
     Route: 048
  27. AZITHROMYCIN ANHYDROUS. [Concomitant]
     Active Substance: AZITHROMYCIN ANHYDROUS
     Dosage: UNK UNK, QD
     Route: 048
  28. ALEMTUZUMAB [Suspect]
     Active Substance: ALEMTUZUMAB
     Dosage: QD
     Route: 041
     Dates: start: 20170515, end: 20170517
  29. ACICLOVIR [Concomitant]
     Active Substance: ACYCLOVIR
     Indication: PROPHYLAXIS
     Dosage: 200 MG, BID
     Route: 048
     Dates: start: 20170504
  30. SIMVASTATIN. [Concomitant]
     Active Substance: SIMVASTATIN
     Indication: HYPERLIPIDAEMIA
     Dosage: 20 MG,UNK
     Route: 048
     Dates: start: 2015
  31. HYDRALAZINE [Concomitant]
     Active Substance: HYDRALAZINE HYDROCHLORIDE
     Dosage: 20 MG/ML, Q4H 10MG 0.5 ML IV PUSH
     Route: 042
  32. FLUCONAZOLE. [Concomitant]
     Active Substance: FLUCONAZOLE
     Dosage: 100 MG, QD
     Route: 042
  33. TRAMADOL. [Concomitant]
     Active Substance: TRAMADOL
     Dosage: 50 MG, Q8H
     Route: 048
  34. VITAMIN D [VITAMIN D NOS] [Concomitant]
     Active Substance: VITAMIN D NOS
     Indication: MULTIPLE SCLEROSIS
     Dosage: 1000 IU
     Dates: start: 2015
  35. ERGOCALCIFEROL. [Concomitant]
     Active Substance: ERGOCALCIFEROL
     Indication: MULTIPLE SCLEROSIS
     Dosage: 1000 IU,UNK
     Route: 048
     Dates: start: 2015
  36. ACETAMINOPHEN. [Concomitant]
     Active Substance: ACETAMINOPHEN
     Dosage: 850 MG
     Route: 048
  37. SODIUM CHLORIDE. [Concomitant]
     Active Substance: SODIUM CHLORIDE
     Dosage: 0.9 % (1000ML)125 ML/HR
     Route: 042
  38. ONDANSETRON [Concomitant]
     Active Substance: ONDANSETRON
     Dosage: 4 MG/ML, Q4H
     Route: 042

REACTIONS (11)
  - Urinary tract infection [Recovered/Resolved]
  - Gastroenteritis Escherichia coli [Recovered/Resolved]
  - Pulmonary embolism [Recovered/Resolved]
  - Nausea [Recovered/Resolved]
  - Urinary tract infection [Recovered/Resolved]
  - Urinary tract infection [Recovered/Resolved]
  - Pathological fracture [Recovered/Resolved]
  - Hypertension [Recovered/Resolved]
  - Sepsis [Recovered/Resolved]
  - Osteomyelitis [Recovered/Resolved]
  - Pyrexia [Recovered/Resolved]

NARRATIVE: CASE EVENT DATE: 20170511
